FAERS Safety Report 16842312 (Version 1)
Quarter: 2019Q3

REPORT INFORMATION
  Report Type: Report from Study
  Country: None (occurrence: LB)
  Receive Date: 20190924
  Receipt Date: 20190924
  Transmission Date: 20191005
  Serious: Yes (Hospitalization)
  Sender: FDA-Public Use
  Company Number: LB-ABBVIE-19K-093-2930033-00

PATIENT
  Age: 10 Year
  Sex: Female
  Weight: 34 kg

DRUGS (11)
  1. VITAMIN D [Concomitant]
     Active Substance: VITAMIN D NOS
     Indication: PRODUCT USED FOR UNKNOWN INDICATION
  2. CORTISONE [Concomitant]
     Active Substance: CORTISONE
     Route: 061
     Dates: start: 20180625
  3. HUMIRA [Suspect]
     Active Substance: ADALIMUMAB
     Indication: CROHN^S DISEASE
     Dosage: 40 MG LOADING DOSE
     Route: 058
     Dates: start: 20180430, end: 20180430
  4. HUMIRA [Suspect]
     Active Substance: ADALIMUMAB
     Route: 058
     Dates: start: 201905
  5. CORTISONE [Concomitant]
     Active Substance: CORTISONE
     Dosage: DOSE AND FREQUENCY: 1MG-TAPERED GRADUALLY EVERY 10 DAYS
     Dates: start: 20180614, end: 20180624
  6. HUMIRA [Suspect]
     Active Substance: ADALIMUMAB
     Route: 058
     Dates: start: 20180514, end: 20180924
  7. CORTISONE [Concomitant]
     Active Substance: CORTISONE
     Indication: PRODUCT USED FOR UNKNOWN INDICATION
     Dosage: DOSE AND FREQUENCY: 3.5MG-TAPERED GRADUALLY EVERY 5 DAYS
     Dates: end: 20180613
  8. HUMIRA [Suspect]
     Active Substance: ADALIMUMAB
     Route: 058
     Dates: start: 20181008, end: 20190125
  9. HUMIRA [Suspect]
     Active Substance: ADALIMUMAB
     Route: 058
     Dates: start: 20190412, end: 201905
  10. HUMIRA [Suspect]
     Active Substance: ADALIMUMAB
     Route: 058
     Dates: start: 20190208, end: 201903
  11. PENTASA [Concomitant]
     Active Substance: MESALAMINE
     Indication: PRODUCT USED FOR UNKNOWN INDICATION

REACTIONS (9)
  - Faecal calprotectin increased [Not Recovered/Not Resolved]
  - Needle issue [Unknown]
  - Product administration error [Unknown]
  - Vomiting [Recovered/Resolved]
  - Drug level decreased [Not Recovered/Not Resolved]
  - Crohn^s disease [Recovered/Resolved]
  - Wrong technique in product usage process [Unknown]
  - Liquid product physical issue [Unknown]
  - Device issue [Unknown]

NARRATIVE: CASE EVENT DATE: 201905
